FAERS Safety Report 13988589 (Version 15)
Quarter: 2020Q1

REPORT INFORMATION
  Report Type: Spontaneous
  Country: US (occurrence: US)
  Receive Date: 20170919
  Receipt Date: 20200331
  Transmission Date: 20200409
  Serious: Yes (Hospitalization, Other)
  Sender: FDA-Public Use
  Company Number: US-ACTELION-A-US2017-159455

PATIENT
  Age: 66 Year
  Sex: Female
  Weight: 90.7 kg

DRUGS (25)
  1. ALLOPURINOL. [Concomitant]
     Active Substance: ALLOPURINOL
     Dosage: 100 MG, QD
     Route: 048
  2. METOPROLOL SUCCINATE. [Concomitant]
     Active Substance: METOPROLOL SUCCINATE
     Dosage: 50 MG, QD
     Route: 048
  3. UPTRAVI [Suspect]
     Active Substance: SELEXIPAG
     Indication: PULMONARY HYPERTENSION
     Dosage: 1200 MCG, BID
     Route: 048
     Dates: start: 20160926
  4. REMODULIN [Suspect]
     Active Substance: TREPROSTINIL
     Indication: PRODUCT USED FOR UNKNOWN INDICATION
     Dosage: 1.25 NG/KG, PER MIN
     Route: 058
  5. TADALAFIL. [Concomitant]
     Active Substance: TADALAFIL
     Dosage: 40 MG, BID
     Route: 048
  6. REVATIO [Concomitant]
     Active Substance: SILDENAFIL CITRATE
  7. SPIRONOLACTONE. [Concomitant]
     Active Substance: SPIRONOLACTONE
  8. TORSEMIDE. [Concomitant]
     Active Substance: TORSEMIDE
     Dosage: 20 MG, BID
  9. UPTRAVI [Suspect]
     Active Substance: SELEXIPAG
     Dosage: 1000 MCG, BID
     Route: 048
  10. TORSEMIDE. [Concomitant]
     Active Substance: TORSEMIDE
     Dosage: 40 MG, QOD
  11. COLCRYS [Concomitant]
     Active Substance: COLCHICINE
     Indication: DIARRHOEA
  12. ONDANSETRON [Concomitant]
     Active Substance: ONDANSETRON
     Dosage: 4 MG
     Route: 048
  13. UPTRAVI [Suspect]
     Active Substance: SELEXIPAG
     Dosage: 1400 MCG, BID
     Route: 048
  14. UPTRAVI [Suspect]
     Active Substance: SELEXIPAG
     Dosage: 200 MCG, BID
     Route: 048
  15. ELIQUIS [Concomitant]
     Active Substance: APIXABAN
     Dosage: 5 MG, BID
  16. FUROSEMIDE. [Concomitant]
     Active Substance: FUROSEMIDE
  17. METHOTREXATE. [Concomitant]
     Active Substance: METHOTREXATE
     Dosage: 4 TABLES EVERY 7 DAYS
     Route: 048
  18. OPSUMIT [Suspect]
     Active Substance: MACITENTAN
     Indication: PULMONARY HYPERTENSION
     Dosage: 10 MG, QD
     Route: 048
     Dates: start: 20151223
  19. CRESTOR [Concomitant]
     Active Substance: ROSUVASTATIN CALCIUM
     Dosage: 30 MG
     Route: 048
  20. FOLIC ACID. [Concomitant]
     Active Substance: FOLIC ACID
     Dosage: UNK, QD
     Route: 048
  21. COLCRYS [Concomitant]
     Active Substance: COLCHICINE
     Indication: NAUSEA
     Dosage: 0.6 MG, QD
     Route: 048
  22. UPTRAVI [Suspect]
     Active Substance: SELEXIPAG
     Dosage: 400 MCG, BID
     Route: 048
  23. UPTRAVI [Suspect]
     Active Substance: SELEXIPAG
     Dosage: 800 MCG, BID
     Route: 048
  24. METHOTREXATE. [Concomitant]
     Active Substance: METHOTREXATE
     Dosage: 46TABLES EVERY 7 DAYS
     Route: 048
  25. OMEPRAZOLE. [Concomitant]
     Active Substance: OMEPRAZOLE
     Dosage: 20 MG, BID

REACTIONS (21)
  - Cholelithiasis [Recovering/Resolving]
  - Clostridium difficile infection [Unknown]
  - Infusion site discharge [Unknown]
  - Headache [Unknown]
  - Functional gastrointestinal disorder [Not Recovered/Not Resolved]
  - Product administration error [Unknown]
  - Blood uric acid increased [Not Recovered/Not Resolved]
  - Pain in extremity [Recovering/Resolving]
  - Infusion site erythema [Unknown]
  - Abdominal discomfort [Not Recovered/Not Resolved]
  - Peripheral arterial occlusive disease [Recovering/Resolving]
  - Condition aggravated [Recovering/Resolving]
  - Infusion site pain [Unknown]
  - Musculoskeletal pain [Recovering/Resolving]
  - Abdominal pain [Recovering/Resolving]
  - Myalgia [Recovering/Resolving]
  - Cholecystitis [Recovering/Resolving]
  - Hypotension [Recovering/Resolving]
  - Gait disturbance [Recovering/Resolving]
  - Dizziness [Recovering/Resolving]
  - Diarrhoea [Unknown]

NARRATIVE: CASE EVENT DATE: 201909
